FAERS Safety Report 6815864-1 (Version None)
Quarter: 2010Q3

REPORT INFORMATION
  Report Type: 
  Country: None (occurrence: None)
  Receive Date: 20100705
  Receipt Date: 20100624
  Transmission Date: 20110219
  Serious: Yes (Hospitalization)
  Sender: FDA-Public Use
  Company Number: US-SHIRE-ALL1-2010-03028

PATIENT

DRUGS (8)
  1. FOSRENOL [Suspect]
     Indication: HYPERPHOSPHATAEMIA
     Dosage: UNK MG, UNKNOWN
     Route: 048
     Dates: start: 20090101
  2. AMLODIPINE [Concomitant]
     Indication: HYPERTENSION
     Dosage: 10 MG, 1X/DAY:QD
     Route: 048
     Dates: start: 20090101
  3. SIMVASTATIN [Concomitant]
     Indication: BLOOD CHOLESTEROL ABNORMAL
     Dosage: 20 MG, 1X/DAY:QD
     Route: 048
     Dates: start: 20080101
  4. PREDNISONE [Concomitant]
     Indication: WAGNER'S DISEASE
     Dosage: 5 MG, 1X/DAY:QD
     Route: 048
     Dates: start: 20000101
  5. VENLAFAXINE [Concomitant]
     Indication: DEPRESSION
     Dosage: 75 MG, 1X/DAY:QD
     Route: 048
     Dates: start: 20040101
  6. NOVOLOG [Concomitant]
     Indication: TYPE 2 DIABETES MELLITUS
     Dosage: UNK, UNKNOWN
     Route: 058
     Dates: start: 20000101
  7. LEVEMIR [Concomitant]
     Indication: TYPE 2 DIABETES MELLITUS
     Dosage: UNK, UNKNOWN
     Route: 058
     Dates: start: 20000101
  8. LISINOPRIL [Concomitant]
     Indication: RENAL IMPAIRMENT
     Dosage: UNK, UNKNOWN
     Route: 048
     Dates: start: 20090101

REACTIONS (4)
  - ABDOMINAL DISCOMFORT [None]
  - ASTHMA [None]
  - BRONCHITIS [None]
  - DIARRHOEA [None]
